FAERS Safety Report 6816313-X (Version None)
Quarter: 2010Q3

REPORT INFORMATION
  Report Type: 
  Country: None (occurrence: None)
  Receive Date: 20100705
  Receipt Date: 20100621
  Transmission Date: 20110219
  Serious: Yes (Other)
  Sender: FDA-Public Use
  Company Number: PHHY2010US41720

PATIENT
  Sex: Female

DRUGS (1)
  1. RECLAST [Suspect]
     Dosage: 5 MG/ PER YEARS
     Route: 042

REACTIONS (6)
  - BLISTER [None]
  - DIZZINESS [None]
  - KIDNEY INFECTION [None]
  - PAIN [None]
  - PYREXIA [None]
  - WEIGHT DECREASED [None]
